FAERS Safety Report 20082643 (Version 1)
Quarter: 2021Q4

REPORT INFORMATION
  Report Type: Spontaneous
  Country: US (occurrence: None)
  Receive Date: 20211117
  Receipt Date: 20211117
  Transmission Date: 20220303
  Serious: Yes (Hospitalization)
  Sender: FDA-Public Use
  Company Number: None

PATIENT
  Age: 62 Year
  Sex: Female
  Weight: 61.2 kg

DRUGS (3)
  1. BUPRENORPHINE HYDROCHLORIDE [Suspect]
     Active Substance: BUPRENORPHINE HYDROCHLORIDE
     Indication: Pain
     Dosage: OTHER FREQUENCY : EVERY 7 DAYS;?
     Route: 062
     Dates: start: 2021, end: 2021
  2. CARIPRAZINE [Suspect]
     Active Substance: CARIPRAZINE
     Dosage: OTHER FREQUENCY : 4 TIMES A WEEK;?
     Route: 048
  3. Tramadol Hydrochloride 200 mg 24 hr ER caps [Concomitant]

REACTIONS (1)
  - Serotonin syndrome [None]

NARRATIVE: CASE EVENT DATE: 20210823
